FAERS Safety Report 5223659-8 (Version None)
Quarter: 2007Q1

REPORT INFORMATION
  Report Type: 
  Country: None (occurrence: None)
  Receive Date: 20070130
  Receipt Date: 20070117
  Transmission Date: 20070707
  Serious: Yes (Other)
  Sender: FDA-Public Use
  Company Number: JP-SANOFI-SYNTHELABO-A01200700613

PATIENT
  Age: 65 Year
  Sex: Female

DRUGS (8)
  1. POLARAMINE [Concomitant]
     Indication: DRUG USE FOR UNKNOWN INDICATION
     Dosage: 6 MG
     Route: 048
     Dates: start: 20061001, end: 20070101
  2. TAVEGYL [Concomitant]
     Indication: DRUG USE FOR UNKNOWN INDICATION
     Dosage: 2 MG
     Route: 048
     Dates: start: 20061001, end: 20070101
  3. BARACLUDE [Concomitant]
     Indication: DRUG USE FOR UNKNOWN INDICATION
     Dosage: UNK
     Route: 048
  4. PARIET [Concomitant]
     Indication: DRUG USE FOR UNKNOWN INDICATION
     Dosage: 20 MG
     Route: 048
  5. LIVACT [Concomitant]
     Indication: HEPATIC CIRRHOSIS
     Dosage: 12.45 G
     Route: 048
  6. PENTAZOCINE LACTATE [Suspect]
     Indication: DRUG USE FOR UNKNOWN INDICATION
     Dosage: 50 MG
     Route: 065
     Dates: start: 20061001, end: 20070109
  7. PENTAZOCINE LACTATE [Suspect]
     Dosage: 25 MG
     Route: 065
     Dates: start: 20070110, end: 20070115
  8. PENTAZOCINE LACTATE [Suspect]
     Dosage: 12.5 MG
     Route: 065
     Dates: start: 20070116

REACTIONS (1)
  - DEMENTIA [None]
